FAERS Safety Report 10586856 (Version 2)
Quarter: 2014Q4

REPORT INFORMATION
  Report Type: Spontaneous
  Country: US (occurrence: US)
  Receive Date: 20141117
  Receipt Date: 20141208
  Transmission Date: 20150529
  Serious: Yes (Other)
  Sender: FDA-Public Use
  Company Number: US-009507513-1411USA007017

PATIENT

DRUGS (5)
  1. RIBAVIRIN. [Suspect]
     Active Substance: RIBAVIRIN
     Indication: CHRONIC HEPATITIS C
     Dosage: WEIGHT BASED
     Route: 048
  2. ABT-450 [Suspect]
     Active Substance: VERUPREVIR
     Dosage: 150 MG, QD
  3. RITONAVIR. [Suspect]
     Active Substance: RITONAVIR
     Dosage: 100 MG, QD
  4. OMBITASVIR [Suspect]
     Active Substance: OMBITASVIR
     Dosage: 25 MG, DAILY
  5. DASABUVIR [Suspect]
     Active Substance: DASABUVIR
     Dosage: 250 MG, TWICE A DAY

REACTIONS (1)
  - Adverse event [Unknown]
